FAERS Safety Report 12511440 (Version 3)
Quarter: 2017Q1

REPORT INFORMATION
  Report Type: Report from Study
  Country: JP (occurrence: JP)
  Receive Date: 20160629
  Receipt Date: 20170301
  Transmission Date: 20170428
  Serious: Yes (Hospitalization, Other)
  Sender: FDA-Public Use
  Company Number: JP-AMGEN-JPNNI2016084478

PATIENT
  Age: 65 Year
  Sex: Male

DRUGS (5)
  1. ROCALTROL [Suspect]
     Active Substance: CALCITRIOL
     Indication: PRODUCT USED FOR UNKNOWN INDICATION
     Dosage: UNK
     Route: 042
     Dates: start: 20151028
  2. ROCALTROL [Suspect]
     Active Substance: CALCITRIOL
     Dosage: UNK
     Route: 042
     Dates: start: 20151028, end: 20160601
  3. ROCALTROL [Suspect]
     Active Substance: CALCITRIOL
     Dosage: UNK
     Route: 042
     Dates: start: 20160729, end: 20161024
  4. DARBEPOETIN ALFA [Suspect]
     Active Substance: DARBEPOETIN ALFA
     Indication: PRODUCT USED FOR UNKNOWN INDICATION
     Dosage: UNK
     Route: 042
     Dates: start: 20151005, end: 20151026
  5. DARBEPOETIN ALFA [Suspect]
     Active Substance: DARBEPOETIN ALFA
     Dosage: UNK
     Route: 042
     Dates: start: 20151102, end: 20151125

REACTIONS (3)
  - Hospitalisation [Recovering/Resolving]
  - Arteriovenous fistula site infection [Recovering/Resolving]
  - Hospitalisation [Recovering/Resolving]

NARRATIVE: CASE EVENT DATE: 20151125
